FAERS Safety Report 25889634 (Version 2)
Quarter: 2025Q4

REPORT INFORMATION
  Report Type: Spontaneous
  Country: EU (occurrence: EU)
  Receive Date: 20251007
  Receipt Date: 20251010
  Transmission Date: 20260118
  Serious: Yes (Other)
  Sender: AUROBINDO
  Company Number: EU-002147023-NVSC2025DE148710

PATIENT
  Age: 41 Year
  Sex: Female

DRUGS (5)
  1. LETROZOLE [Suspect]
     Active Substance: LETROZOLE
     Indication: Breast cancer
     Dosage: UNK
     Route: 065
     Dates: start: 201511, end: 201707
  2. LETROZOLE [Suspect]
     Active Substance: LETROZOLE
     Indication: Adjuvant therapy
  3. TAMOXIFEN [Suspect]
     Active Substance: TAMOXIFEN
     Indication: Breast cancer
     Dosage: UNK
     Route: 065
     Dates: start: 2012
  4. DOCETAXEL [Concomitant]
     Active Substance: DOCETAXEL
     Indication: Adjuvant therapy
     Dosage: 75 MG/M2, CYCLICAL (4 CYCLES (75 MG/M? KOF) D1)
     Route: 065
  5. CYCLOPHOSPHAMIDE [Concomitant]
     Active Substance: CYCLOPHOSPHAMIDE
     Indication: Product used for unknown indication
     Dosage: 600 MG/M2, CYCLICAL (600 MG/M? KOF) D1, Q21D)
     Route: 065

REACTIONS (4)
  - Breast cancer [Unknown]
  - Breast cancer metastatic [Unknown]
  - Malignant neoplasm progression [Unknown]
  - Metastases to soft tissue [Unknown]

NARRATIVE: CASE EVENT DATE: 20170701
